FAERS Safety Report 24182906 (Version 1)
Quarter: 2024Q3

REPORT INFORMATION
  Report Type: 
  Country: AU (occurrence: AU)
  Receive Date: 20240807
  Receipt Date: 20240807
  Transmission Date: 20241017
  Serious: Yes (Other)
  Sender: CELLTRION
  Company Number: AU-CELLTRION INC.-2024AU018522

PATIENT

DRUGS (4)
  1. RITUXIMAB [Suspect]
     Active Substance: RITUXIMAB
     Indication: Product used for unknown indication
  2. CYTARABINE [Suspect]
     Active Substance: CYTARABINE
     Indication: Product used for unknown indication
  3. METHOTREXATE [Suspect]
     Active Substance: METHOTREXATE
     Indication: Product used for unknown indication
  4. THIOTEPA [Suspect]
     Active Substance: THIOTEPA
     Indication: Product used for unknown indication

REACTIONS (13)
  - Central nervous system lymphoma [Unknown]
  - Perforated ulcer [Unknown]
  - Deep vein thrombosis [Unknown]
  - Pulmonary embolism [Unknown]
  - Major depression [Unknown]
  - Renal failure [Unknown]
  - Septic shock [Unknown]
  - Gastrointestinal fungal infection [Unknown]
  - Aspergillus infection [Unknown]
  - Neutropenic sepsis [Unknown]
  - Perihepatic abscess [Unknown]
  - Peritonitis [Unknown]
  - Disease recurrence [Unknown]
